FAERS Safety Report 9916337 (Version 2)
Quarter: 2014Q1

REPORT INFORMATION
  Report Type: Spontaneous
  Country: GB (occurrence: GB)
  Receive Date: 20140221
  Receipt Date: 20140221
  Transmission Date: 20141002
  Serious: Yes (Hospitalization)
  Sender: FDA-Public Use
  Company Number: PHFR2014GB000856

PATIENT
  Age: 54 Year
  Sex: Male
  Weight: 84 kg

DRUGS (5)
  1. CLOZARIL [Suspect]
     Indication: SCHIZOPHRENIA
     Dosage: UNK, TITRATION
     Route: 048
     Dates: start: 20130115
  2. METFORMIN [Concomitant]
     Indication: TYPE 2 DIABETES MELLITUS
     Dosage: 500 MG, UNK
     Route: 048
  3. RAMIPRIL [Concomitant]
     Indication: HYPERTENSION
     Dosage: 10 MG, UNK
     Route: 048
  4. FLUOXETINE [Concomitant]
     Dosage: 10 MG, UNK
     Route: 048
     Dates: start: 20140131
  5. SCOPODERM [Concomitant]
     Indication: SALIVARY HYPERSECRETION
     Dosage: UNK, , 2 TO 3 TIMES A DAYS
     Route: 061
     Dates: start: 20140207

REACTIONS (5)
  - Viral infection [Recovered/Resolved]
  - Oropharyngeal pain [Unknown]
  - Cough [Unknown]
  - Pyrexia [Unknown]
  - Heart rate increased [Recovered/Resolved]
